FAERS Safety Report 9201903 (Version 2)
Quarter: 2013Q2

REPORT INFORMATION
  Report Type: Spontaneous
  Country: US (occurrence: US)
  Receive Date: 20130401
  Receipt Date: 20130510
  Transmission Date: 20140414
  Serious: Yes (Death, Hospitalization, Other)
  Sender: FDA-Public Use
  Company Number: US-ELI_LILLY_AND_COMPANY-US201303009209

PATIENT
  Age: 78 Year
  Sex: Male
  Weight: 91 kg

DRUGS (4)
  1. ALIMTA [Suspect]
     Indication: LUNG ADENOCARCINOMA STAGE IV
     Dosage: 500 MG/M2, EVERY 3 WEEKS
     Route: 042
     Dates: start: 20130107
  2. VITAMIN B12 [Concomitant]
     Dosage: 1000 UG, UNK
     Route: 030
     Dates: start: 20130107
  3. FOLIC ACID [Concomitant]
     Dosage: 1 MG, QD
     Route: 048
     Dates: start: 20130107
  4. DEXAMETHASONE [Concomitant]
     Dosage: 4 MG, BID
     Route: 048
     Dates: start: 20130107

REACTIONS (3)
  - Pneumonia [Fatal]
  - Sepsis [Fatal]
  - Pancytopenia [Fatal]
